FAERS Safety Report 9717701 (Version 1)
Quarter: 2013Q4

REPORT INFORMATION
  Report Type: Spontaneous
  Country: US (occurrence: US)
  Receive Date: 20131127
  Receipt Date: 20131127
  Transmission Date: 20140711
  Serious: No
  Sender: FDA-Public Use
  Company Number: US-BANPHARM-20130913

PATIENT
  Sex: 0

DRUGS (1)
  1. ERGOCALCIFEROL [Suspect]

REACTIONS (1)
  - Unevaluable event [Unknown]
